FAERS Safety Report 17324531 (Version 1)
Quarter: 2020Q1

REPORT INFORMATION
  Report Type: Other
  Country: GB (occurrence: GB)
  Receive Date: 20200127
  Receipt Date: 20200127
  Transmission Date: 20200409
  Serious: Yes (Other)
  Sender: FDA-Public Use
  Company Number: GB-STRIDES ARCOLAB LIMITED-2020SP000769

PATIENT

DRUGS (1)
  1. IBUPROFEN. [Suspect]
     Active Substance: IBUPROFEN
     Indication: PRODUCT USED FOR UNKNOWN INDICATION
     Dosage: 3 DF, UNK, TABLET
     Route: 065

REACTIONS (4)
  - Testicular pain [Unknown]
  - Headache [Unknown]
  - Angina pectoris [Unknown]
  - Product quality issue [Unknown]

NARRATIVE: CASE EVENT DATE: 20191224
